FAERS Safety Report 22754852 (Version 8)
Quarter: 2023Q4

REPORT INFORMATION
  Report Type: Other
  Country: JP (occurrence: JP)
  Receive Date: 20230727
  Receipt Date: 20231127
  Transmission Date: 20240110
  Serious: Yes (Hospitalization, Other)
  Sender: FDA-Public Use
  Company Number: JP-CHUGAI-2023026128AA

PATIENT
  Age: 75 Year
  Sex: Female
  Weight: 74 kg

DRUGS (30)
  1. POLIVY [Suspect]
     Active Substance: POLATUZUMAB VEDOTIN-PIIQ
     Indication: Diffuse large B-cell lymphoma
     Route: 041
     Dates: start: 20230513, end: 20230513
  2. POLIVY [Suspect]
     Active Substance: POLATUZUMAB VEDOTIN-PIIQ
     Dosage: 129 MILLIGRAM
     Route: 041
     Dates: start: 20230602, end: 20230602
  3. POLIVY [Suspect]
     Active Substance: POLATUZUMAB VEDOTIN-PIIQ
     Dosage: 129 MILLIGRAM
     Route: 041
     Dates: start: 20230623, end: 20230623
  4. POLIVY [Suspect]
     Active Substance: POLATUZUMAB VEDOTIN-PIIQ
     Dosage: 129 MILLIGRAM
     Route: 041
     Dates: start: 20230714, end: 20230714
  5. POLIVY [Suspect]
     Active Substance: POLATUZUMAB VEDOTIN-PIIQ
     Dosage: 129 MILLIGRAM
     Route: 041
     Dates: start: 20230805, end: 20230805
  6. LENOGRASTIM [Suspect]
     Active Substance: LENOGRASTIM
     Indication: Product used for unknown indication
     Dosage: UNK
     Route: 065
  7. RITUXAN [Suspect]
     Active Substance: RITUXIMAB
     Indication: Diffuse large B-cell lymphoma
     Route: 041
     Dates: start: 20230512, end: 20230512
  8. RITUXAN [Suspect]
     Active Substance: RITUXIMAB
     Dosage: 634 MILLIGRAM
     Route: 041
     Dates: start: 20230601, end: 20230601
  9. RITUXAN [Suspect]
     Active Substance: RITUXIMAB
     Dosage: 634 MILLIGRAM
     Route: 041
     Dates: start: 20230622, end: 20230622
  10. RITUXAN [Suspect]
     Active Substance: RITUXIMAB
     Dosage: 634 MILLIGRAM
     Route: 041
     Dates: start: 20230713, end: 20230713
  11. RITUXAN [Suspect]
     Active Substance: RITUXIMAB
     Dosage: 634 MILLIGRAM
     Route: 041
     Dates: start: 20230803, end: 20230803
  12. RITUXAN [Suspect]
     Active Substance: RITUXIMAB
     Dosage: 634 MILLIGRAM
     Route: 041
     Dates: start: 20230921, end: 20230921
  13. RITUXAN [Suspect]
     Active Substance: RITUXIMAB
     Dosage: 634 MILLIGRAM
     Route: 041
     Dates: start: 20231012, end: 20231012
  14. CYCLOPHOSPHAMIDE [Suspect]
     Active Substance: CYCLOPHOSPHAMIDE
     Indication: Diffuse large B-cell lymphoma
     Dosage: 1270 MILLIGRAM
     Route: 041
     Dates: start: 20230513, end: 20230513
  15. CYCLOPHOSPHAMIDE [Suspect]
     Active Substance: CYCLOPHOSPHAMIDE
     Dosage: 885 MILLIGRAM
     Route: 041
     Dates: start: 20230602, end: 20230602
  16. CYCLOPHOSPHAMIDE [Suspect]
     Active Substance: CYCLOPHOSPHAMIDE
     Dosage: 885 MILLIGRAM
     Route: 041
     Dates: start: 20230623, end: 20230623
  17. CYCLOPHOSPHAMIDE [Suspect]
     Active Substance: CYCLOPHOSPHAMIDE
     Dosage: 885 MILLIGRAM
     Route: 041
     Dates: start: 20230714, end: 20230714
  18. CYCLOPHOSPHAMIDE [Suspect]
     Active Substance: CYCLOPHOSPHAMIDE
     Dosage: 885 MILLIGRAM
     Route: 041
     Dates: start: 20230805, end: 20230805
  19. DOXORUBICIN HYDROCHLORIDE [Suspect]
     Active Substance: DOXORUBICIN HYDROCHLORIDE
     Indication: Diffuse large B-cell lymphoma
     Dosage: 85 MILLIGRAM
     Route: 041
     Dates: start: 20230513, end: 20230513
  20. DOXORUBICIN HYDROCHLORIDE [Suspect]
     Active Substance: DOXORUBICIN HYDROCHLORIDE
     Dosage: 59 MILLIGRAM
     Route: 041
     Dates: start: 20230602, end: 20230602
  21. DOXORUBICIN HYDROCHLORIDE [Suspect]
     Active Substance: DOXORUBICIN HYDROCHLORIDE
     Dosage: 59 MILLIGRAM
     Route: 041
     Dates: start: 20230623, end: 20230623
  22. DOXORUBICIN HYDROCHLORIDE [Suspect]
     Active Substance: DOXORUBICIN HYDROCHLORIDE
     Route: 041
     Dates: start: 20230714, end: 20230714
  23. DOXORUBICIN HYDROCHLORIDE [Suspect]
     Active Substance: DOXORUBICIN HYDROCHLORIDE
     Route: 041
     Dates: start: 20230805, end: 20230805
  24. PREDNISOLONE [Suspect]
     Active Substance: PREDNISOLONE
     Indication: Diffuse large B-cell lymphoma
     Dosage: 50 MILLIGRAM
     Route: 048
     Dates: start: 20230512
  25. PREDNISOLONE [Suspect]
     Active Substance: PREDNISOLONE
     Route: 048
     Dates: start: 20230713, end: 20230717
  26. PREDNISOLONE [Suspect]
     Active Substance: PREDNISOLONE
     Route: 048
     Dates: start: 20230805, end: 20230809
  27. PREDNISOLONE [Suspect]
     Active Substance: PREDNISOLONE
     Route: 048
     Dates: start: 20230601, end: 20230605
  28. PREDNISOLONE [Suspect]
     Active Substance: PREDNISOLONE
     Route: 048
     Dates: start: 20230623, end: 20230627
  29. PEGFILGRASTIM [Concomitant]
     Active Substance: PEGFILGRASTIM
     Dosage: UNK
     Route: 042
  30. FILGRASTIM [Concomitant]
     Active Substance: FILGRASTIM
     Route: 042

REACTIONS (5)
  - Deep vein thrombosis [Recovered/Resolved]
  - Depressed level of consciousness [Recovered/Resolved]
  - Neutrophil count decreased [Recovered/Resolved]
  - Febrile neutropenia [Recovered/Resolved]
  - Heat illness [Unknown]

NARRATIVE: CASE EVENT DATE: 20230520
